FAERS Safety Report 9725319 (Version 4)
Quarter: 2014Q1

REPORT INFORMATION
  Report Type: Spontaneous
  Country: US (occurrence: None)
  Receive Date: 20131129
  Receipt Date: 20140228
  Transmission Date: 20141002
  Serious: Yes (Other)
  Sender: FDA-Public Use
  Company Number: 2013-US-003682

PATIENT
  Age: 54 Year
  Sex: Female
  Weight: 37.2 kg

DRUGS (8)
  1. XYREM [Suspect]
     Indication: NARCOLEPSY
     Dosage: 2.25 G, QD, FOR ONE DAY, ORAL
     Route: 048
     Dates: start: 201005
  2. XYREM [Suspect]
     Indication: CATAPLEXY
     Dosage: 2.25 G, QD, FOR ONE DAY, ORAL
     Route: 048
     Dates: start: 201005
  3. XYREM [Suspect]
     Dosage: 2.25 G, QD, FOR ONE DAY, ORAL
     Route: 048
     Dates: start: 201005
  4. KLONOPIN (CLONAZEPAM) (TABLETS) [Concomitant]
  5. VISTARIL (HYDROXYZINE HYDROCHLORIDE) [Concomitant]
  6. LEXAPRO (ESCITALOPRAM OXALATE) [Concomitant]
  7. VITAMIN 15 (ASCORBIC ACID, CALCIUM GLUCONATE, CALCIUM PANTOTHENATE, CALCIUM PHOSPHATE, CYANOCOBALAMIN, ERGOCALCIFEROL, FERROUS FUMARATE, FOLIC ACID, MAGNESIUM PHOSPHATE, NICOTINAMIDE, PYRIDOXINE HYDROCHLORIDE, RETINOL, RIBOFLAVIN, THIAMINE HYDROCHLORIDE, [Concomitant]
  8. PROLIA (DENOSUMAB) [Concomitant]

REACTIONS (17)
  - Convulsion [None]
  - Poor quality sleep [None]
  - Somnolence [None]
  - Somnambulism [None]
  - Memory impairment [None]
  - Condition aggravated [None]
  - Anxiety [None]
  - Grand mal convulsion [None]
  - Contusion [None]
  - Lip haemorrhage [None]
  - Fall [None]
  - Drug ineffective [None]
  - Drug dose omission [None]
  - Insomnia [None]
  - Joint injury [None]
  - Musculoskeletal pain [None]
  - Confusional state [None]
